FAERS Safety Report 11725909 (Version 1)
Quarter: 2015Q4

REPORT INFORMATION
  Report Type: Spontaneous
  Country: FR (occurrence: FR)
  Receive Date: 20151112
  Receipt Date: 20151112
  Transmission Date: 20160304
  Serious: Yes (Other)
  Sender: FDA-Public Use
  Company Number: FR-AMGEN-FRASP2015081729

PATIENT
  Age: 52 Year
  Sex: Female
  Weight: 52 kg

DRUGS (6)
  1. MYFORTIC [Concomitant]
     Active Substance: MYCOPHENOLATE SODIUM
     Indication: IMMUNOSUPPRESSION
     Dosage: 360 MG, BID
     Route: 048
  2. ARANESP [Suspect]
     Active Substance: DARBEPOETIN ALFA
     Indication: PRODUCT USED FOR UNKNOWN INDICATION
     Dosage: 40 MUG, Q2WK
     Route: 065
     Dates: start: 201504, end: 20150909
  3. AMLOR [Concomitant]
     Active Substance: AMLODIPINE BESYLATE
     Indication: HYPERTENSION
     Dosage: 5 MG, QD
     Route: 048
     Dates: start: 20150722
  4. TARDYFERON [Concomitant]
     Active Substance: FERROUS SULFATE\FOLIC ACID
     Indication: IRON DEFICIENCY
     Dosage: 1 UNK, QD
     Route: 048
     Dates: start: 20150722
  5. CORTANCYL [Suspect]
     Active Substance: PREDNISONE
     Indication: IMMUNOSUPPRESSION
     Dosage: 5 MG, QD
     Route: 048
  6. MUPIDERM [Concomitant]
     Active Substance: MUPIROCIN
     Indication: DEVICE RELATED INFECTION
     Dosage: 1 APPLICATION
     Route: 061
     Dates: start: 20150720

REACTIONS (3)
  - Ecchymosis [Unknown]
  - Contusion [Not Recovered/Not Resolved]
  - Peritoneal dialysis [Unknown]

NARRATIVE: CASE EVENT DATE: 201504
